FAERS Safety Report 8396411-2 (Version None)
Quarter: 2012Q2

REPORT INFORMATION
  Report Type: 
  Country: None (occurrence: None)
  Receive Date: 20120530
  Receipt Date: 20120521
  Transmission Date: 20120825
  Serious: Yes (Hospitalization)
  Sender: FDA-Public Use
  Company Number: US-MERCK-1105USA03753

PATIENT
  Age: 60 Year
  Sex: Female

DRUGS (13)
  1. CALCIUM (UNSPECIFIED) AND VITAMIN D (UNSPECIFIED) [Concomitant]
     Route: 048
     Dates: start: 20080101
  2. DYAZIDE [Concomitant]
     Route: 048
  3. AZULFIDINE [Concomitant]
     Indication: COLITIS ULCERATIVE
     Route: 065
  4. FOSAMAX [Suspect]
     Route: 048
     Dates: start: 20000901, end: 20020801
  5. PROTONIX [Concomitant]
     Indication: GASTROOESOPHAGEAL REFLUX DISEASE
     Route: 048
     Dates: start: 20060201
  6. ALENDRONATE SODIUM [Suspect]
     Indication: OSTEOPOROSIS
     Route: 048
     Dates: start: 20080301, end: 20090401
  7. TRIVITA NOPALEA JUICE [Concomitant]
     Route: 048
     Dates: start: 20080101
  8. ALLEGRA [Concomitant]
     Indication: SEASONAL ALLERGY
     Route: 065
  9. ALTACE [Concomitant]
     Indication: HYPERTENSION
     Route: 065
  10. FOSAMAX [Suspect]
     Indication: OSTEOPOROSIS
     Route: 048
     Dates: start: 20000801, end: 20080101
  11. TRIVITA JOINT COMPLEX [Concomitant]
     Route: 048
     Dates: start: 20080101
  12. PREMARIN [Concomitant]
     Indication: HORMONE REPLACEMENT THERAPY
     Route: 065
     Dates: start: 20000801
  13. ZIAC [Concomitant]
     Indication: HYPERTENSION
     Route: 048

REACTIONS (16)
  - BACK PAIN [None]
  - MUSCLE STRAIN [None]
  - CONSTIPATION [None]
  - INCREASED TENDENCY TO BRUISE [None]
  - PUBIS FRACTURE [None]
  - VITAMIN D DEFICIENCY [None]
  - CALCIUM DEFICIENCY [None]
  - FEMUR FRACTURE [None]
  - NAUSEA [None]
  - HEADACHE [None]
  - HIP FRACTURE [None]
  - FALL [None]
  - PNEUMONIA [None]
  - RIB FRACTURE [None]
  - URINARY INCONTINENCE [None]
  - OEDEMA PERIPHERAL [None]
